FAERS Safety Report 4482021-6 (Version None)
Quarter: 2004Q4

REPORT INFORMATION
  Report Type: 
  Country: None (occurrence: None)
  Receive Date: 20041020
  Receipt Date: 20041020
  Transmission Date: 20050328
  Serious: Yes (Hospitalization)
  Sender: FDA-Public Use
  Company Number: None

PATIENT
  Age: 50 Year
  Sex: Female

DRUGS (1)
  1. ASPIRIN [Suspect]
     Indication: PAIN IN EXTREMITY
     Dosage: 4 TO 5 TABLETS/DAY ORAL
     Route: 048
     Dates: start: 20040123, end: 20040130

REACTIONS (5)
  - GASTRIC ULCER [None]
  - HAEMATEMESIS [None]
  - HAEMATOCHEZIA [None]
  - NAUSEA [None]
  - VOMITING [None]
